FAERS Safety Report 19770028 (Version 1)
Quarter: 2021Q3

REPORT INFORMATION
  Report Type: Spontaneous
  Country: US (occurrence: US)
  Receive Date: 20210826
  Receipt Date: 20210826
  Transmission Date: 20211014
  Serious: Yes (Disabling)
  Sender: FDA-Public Use
  Company Number: None

PATIENT
  Age: 46 Year
  Sex: Male
  Weight: 79.38 kg

DRUGS (1)
  1. NEUTROGENA BEACH DEFENSE WATER PLUS SUN PROTECTION SUNSCREEN BROAD SPECTRUM SPF 70 NOS [Suspect]
     Active Substance: AVOBENZONE\HOMOSALATE\OCTISALATE\OCTOCRYLENE OR AVOBENZONE\HOMOSALATE\OCTISALATE\OCTOCRYLENE\OXYBENZONE
     Indication: PROPHYLAXIS AGAINST SOLAR RADIATION
     Dosage: ?          OTHER STRENGTH:6.5 OZ;QUANTITY:1 DF DOSAGE FORM;?
     Route: 061
     Dates: start: 20210707, end: 20210807

REACTIONS (5)
  - Application site irritation [None]
  - Application site pruritus [None]
  - Eye pruritus [None]
  - Eye irritation [None]
  - Application site pain [None]

NARRATIVE: CASE EVENT DATE: 20210707
